FAERS Safety Report 13645237 (Version 1)
Quarter: 2017Q2

REPORT INFORMATION
  Report Type: Spontaneous
  Country: US (occurrence: US)
  Receive Date: 20170612
  Receipt Date: 20170612
  Transmission Date: 20170830
  Serious: No
  Sender: FDA-Public Use
  Company Number: US-ROCHE-1377892

PATIENT
  Sex: Female

DRUGS (10)
  1. CHELIDONIUM [Concomitant]
  2. XELODA [Suspect]
     Active Substance: CAPECITABINE
     Indication: BREAST CANCER
     Dosage: 2 WEEKS ON 1 WEEK OFF
     Route: 048
     Dates: start: 20140318
  3. MILK THISTLE [Concomitant]
     Active Substance: MILK THISTLE
  4. COENZYME Q10 [Concomitant]
     Active Substance: UBIDECARENONE
  5. MELATONIN [Concomitant]
     Active Substance: MELATONIN
  6. OMEGA 3 [Concomitant]
     Active Substance: OMEGA-3 FATTY ACIDS
  7. CALCIUM CITRATE [Concomitant]
     Active Substance: CALCIUM CITRATE
  8. VITAMIN D3 [Concomitant]
     Active Substance: CHOLECALCIFEROL
  9. ONDANSETRON [Concomitant]
     Active Substance: ONDANSETRON
  10. TURMERIC [Concomitant]
     Active Substance: HERBALS\TURMERIC

REACTIONS (2)
  - Emotional distress [Unknown]
  - Skin disorder [Unknown]
